FAERS Safety Report 12941651 (Version 1)
Quarter: 2016Q4

REPORT INFORMATION
  Report Type: Report from Study
  Country: US (occurrence: US)
  Receive Date: 20161114
  Receipt Date: 20161114
  Transmission Date: 20170207
  Serious: Yes (Hospitalization)
  Sender: FDA-Public Use
  Company Number: US-GILEAD-2016-0241127

PATIENT
  Age: 58 Year
  Sex: Male
  Weight: 94 kg

DRUGS (1)
  1. LEDIPASVIR/SOFOSBUVIR [Suspect]
     Active Substance: LEDIPASVIR\SOFOSBUVIR
     Indication: HEPATITIS C
     Dosage: 1 DF, QD
     Route: 048
     Dates: start: 20161010

REACTIONS (2)
  - Headache [Recovered/Resolved]
  - Respiratory disorder [Unknown]

NARRATIVE: CASE EVENT DATE: 201610
